FAERS Safety Report 18361819 (Version 1)
Quarter: 2020Q4

REPORT INFORMATION
  Report Type: Spontaneous
  Country: US (occurrence: US)
  Receive Date: 20201008
  Receipt Date: 20201008
  Transmission Date: 20210114
  Serious: Yes (Other)
  Sender: FDA-Public Use
  Company Number: US-BRISTOL-MYERS SQUIBB COMPANY-BMS-2020-080606

PATIENT
  Age: 64 Year
  Sex: Female
  Weight: 79.38 kg

DRUGS (2)
  1. PLAQUENIL [Concomitant]
     Active Substance: HYDROXYCHLOROQUINE SULFATE
     Indication: PRODUCT USED FOR UNKNOWN INDICATION
     Route: 065
  2. ORENCIA [Suspect]
     Active Substance: ABATACEPT
     Indication: RHEUMATOID ARTHRITIS
     Dosage: UNK UNK, QWK
     Route: 065

REACTIONS (5)
  - Cystitis interstitial [Unknown]
  - Coeliac disease [Unknown]
  - Sjogren^s syndrome [Unknown]
  - Product temperature excursion issue [Unknown]
  - Asthma [Unknown]

NARRATIVE: CASE EVENT DATE: 20200929
